FAERS Safety Report 16399676 (Version 2)
Quarter: 2019Q3

REPORT INFORMATION
  Report Type: Spontaneous
  Country: US (occurrence: US)
  Receive Date: 20190606
  Receipt Date: 20190830
  Transmission Date: 20191004
  Serious: No
  Sender: FDA-Public Use
  Company Number: US-SA-2019SA151195

PATIENT
  Age: 59 Year
  Sex: Female

DRUGS (1)
  1. KEVZARA [Suspect]
     Active Substance: SARILUMAB
     Indication: POLYARTHRITIS
     Dosage: 200 MG, QOW
     Route: 058

REACTIONS (2)
  - Rash [Unknown]
  - Swelling face [Unknown]

NARRATIVE: CASE EVENT DATE: 20190529
